FAERS Safety Report 13551076 (Version 1)
Quarter: 2017Q2

REPORT INFORMATION
  Report Type: Spontaneous
  Country: US (occurrence: US)
  Receive Date: 20170516
  Receipt Date: 20170516
  Transmission Date: 20170830
  Serious: Yes (Hospitalization, Other)
  Sender: FDA-Public Use
  Company Number: US-ELI_LILLY_AND_COMPANY-US201705003052

PATIENT
  Sex: Male

DRUGS (2)
  1. HUMALOG MIX75/25 [Suspect]
     Active Substance: INSULIN LISPRO
     Indication: PRODUCT USED FOR UNKNOWN INDICATION
     Dosage: UNK UNK, UNKNOWN
     Route: 058
     Dates: start: 201505
  2. HUMALOG MIX75/25 [Suspect]
     Active Substance: INSULIN LISPRO
     Dosage: UNK UNK, UNKNOWN
     Route: 058

REACTIONS (8)
  - Decreased appetite [Recovered/Resolved]
  - Renal mass [Not Recovered/Not Resolved]
  - Pain [Unknown]
  - Musculoskeletal discomfort [Not Recovered/Not Resolved]
  - Gallbladder disorder [Recovering/Resolving]
  - Hepatic mass [Not Recovered/Not Resolved]
  - Blood glucose abnormal [Recovered/Resolved]
  - Hepatic steatosis [Not Recovered/Not Resolved]
